FAERS Safety Report 5739291-3 (Version None)
Quarter: 2008Q2

REPORT INFORMATION
  Report Type: 
  Country: None (occurrence: None)
  Receive Date: 20080515
  Receipt Date: 20080416
  Transmission Date: 20081010
  Serious: Yes (Other)
  Sender: FDA-Public Use
  Company Number: BR-JNJFOC-20080502587

PATIENT
  Sex: Female

DRUGS (5)
  1. TRAMADOL HCL [Suspect]
     Indication: FIBROMYALGIA
     Route: 065
  2. FRONTAL [Suspect]
     Indication: FIBROMYALGIA
     Route: 048
  3. FLUOXETINE [Concomitant]
     Indication: FIBROMYALGIA
     Route: 065
  4. IBUPROFEN TABLETS [Concomitant]
     Indication: FIBROMYALGIA
     Route: 065
  5. AMITRIPTYLINE HCL [Concomitant]
     Indication: FIBROMYALGIA
     Route: 065

REACTIONS (7)
  - ABDOMINAL DISCOMFORT [None]
  - CARPAL TUNNEL SYNDROME [None]
  - EPICONDYLITIS [None]
  - INSOMNIA [None]
  - TENOSYNOVITIS [None]
  - WEIGHT INCREASED [None]
  - WOUND COMPLICATION [None]
